FAERS Safety Report 7237467-X (Version None)
Quarter: 2011Q1

REPORT INFORMATION
  Report Type: 
  Country: None (occurrence: None)
  Receive Date: 20110118
  Receipt Date: 20110104
  Transmission Date: 20110831
  Serious: Yes (Death, Hospitalization)
  Sender: FDA-Public Use
  Company Number: KV201100003

PATIENT
  Age: 59 Year
  Sex: Male

DRUGS (1)
  1. METOPROLOL SUCCINATE [Suspect]
     Indication: HYPERTENSION
     Dosage: 50 MG, ORAL
     Route: 048
     Dates: start: 20080908, end: 20081205

REACTIONS (11)
  - CAROTID ANEURYSM RUPTURE [None]
  - LOSS OF CONSCIOUSNESS [None]
  - OEDEMA PERIPHERAL [None]
  - COMA [None]
  - PRODUCT SUBSTITUTION ISSUE [None]
  - HEADACHE [None]
  - BLOOD PRESSURE INCREASED [None]
  - FLUSHING [None]
  - SUBARACHNOID HAEMORRHAGE [None]
  - DRUG INEFFECTIVE [None]
  - LOCAL SWELLING [None]
